FAERS Safety Report 17661433 (Version 1)
Quarter: 2020Q2

REPORT INFORMATION
  Report Type: Spontaneous
  Country: US (occurrence: US)
  Receive Date: 20200413
  Receipt Date: 20200413
  Transmission Date: 20200713
  Serious: Yes (Life-Threatening, Hospitalization, Other)
  Sender: FDA-Public Use
  Company Number: US-HIKMA PHARMACEUTICALS USA INC.-US-H14001-20-01826

PATIENT
  Age: 78 Year
  Sex: Male

DRUGS (1)
  1. HEPARIN [Suspect]
     Active Substance: HEPARIN SODIUM
     Indication: CORONARY ARTERY DISEASE
     Route: 065

REACTIONS (7)
  - Graft loss [Recovered/Resolved]
  - Angina unstable [Unknown]
  - Aortic thrombosis [Recovering/Resolving]
  - Pulmonary embolism [Recovering/Resolving]
  - Vascular graft occlusion [Recovered/Resolved]
  - Peripheral artery occlusion [Recovered/Resolved]
  - Heparin-induced thrombocytopenia [Recovering/Resolving]
